FAERS Safety Report 19395096 (Version 2)
Quarter: 2021Q2

REPORT INFORMATION
  Report Type: Spontaneous
  Country: FR (occurrence: FR)
  Receive Date: 20210609
  Receipt Date: 20210621
  Transmission Date: 20210717
  Serious: Yes (Death, Hospitalization, Other)
  Sender: FDA-Public Use
  Company Number: FR-009507513-2106FRA001847

PATIENT
  Age: 52 Year
  Sex: Male

DRUGS (2)
  1. KEYTRUDA [Suspect]
     Active Substance: PEMBROLIZUMAB
     Indication: METASTASES TO LYMPH NODES
  2. KEYTRUDA [Suspect]
     Active Substance: PEMBROLIZUMAB
     Indication: ADENOCARCINOMA OF COLON
     Dosage: 200 MG EVERY 2 WEEKS, 2 CYCLES
     Dates: start: 2021

REACTIONS (9)
  - Diarrhoea [Unknown]
  - Asthenia [Unknown]
  - General physical health deterioration [Unknown]
  - Somnolence [Unknown]
  - Cell death [Unknown]
  - Malignant neoplasm progression [Fatal]
  - Dyspnoea [Unknown]
  - Adverse event [Fatal]
  - Immune-mediated enterocolitis [Unknown]

NARRATIVE: CASE EVENT DATE: 2021
